FAERS Safety Report 9175129 (Version 1)
Quarter: 2013Q1

REPORT INFORMATION
  Report Type: Spontaneous
  Country: US (occurrence: US)
  Receive Date: 20130320
  Receipt Date: 20130320
  Transmission Date: 20140127
  Serious: No
  Sender: FDA-Public Use
  Company Number: US-ELI_LILLY_AND_COMPANY-US201303004329

PATIENT
  Sex: Female

DRUGS (2)
  1. CYMBALTA [Suspect]
     Indication: PAIN
     Dosage: 120 MG, QD
  2. TYLENOL                                 /SCH/ [Concomitant]

REACTIONS (2)
  - Alanine aminotransferase increased [Unknown]
  - Hepatic enzyme increased [Unknown]
